FAERS Safety Report 17316580 (Version 2)
Quarter: 2020Q1

REPORT INFORMATION
  Report Type: Report from Study
  Country: US (occurrence: US)
  Receive Date: 20200124
  Receipt Date: 20200211
  Transmission Date: 20200409
  Serious: Yes (Hospitalization)
  Sender: FDA-Public Use
  Company Number: US-GILEAD-2020-0448017

PATIENT
  Sex: Female

DRUGS (34)
  1. CELEXA [CELECOXIB] [Concomitant]
     Active Substance: CELECOXIB
  2. ATROVENT [Concomitant]
     Active Substance: IPRATROPIUM BROMIDE
  3. VITAMIN D [VITAMIN D NOS] [Concomitant]
     Active Substance: VITAMIN D NOS
  4. AZTREONAM LYSINE [Suspect]
     Active Substance: AZTREONAM LYSINE
     Indication: CYSTIC FIBROSIS LUNG
  5. HUMALOG [Concomitant]
     Active Substance: INSULIN LISPRO
  6. LEVEMIR [Concomitant]
     Active Substance: INSULIN DETEMIR
  7. NEXIUM [Concomitant]
     Active Substance: ESOMEPRAZOLE MAGNESIUM
  8. ANASPAZ [Concomitant]
     Active Substance: HYOSCYAMINE SULFATE
  9. PERIACTIN [Concomitant]
     Active Substance: CYPROHEPTADINE HYDROCHLORIDE
  10. MARINOL [ALLOPURINOL] [Concomitant]
     Active Substance: ALLOPURINOL
  11. SYNTHROID [Concomitant]
     Active Substance: LEVOTHYROXINE SODIUM
  12. ADVAIR HFA [Concomitant]
     Active Substance: FLUTICASONE PROPIONATE\SALMETEROL XINAFOATE
  13. WELLBUTRIN [Concomitant]
     Active Substance: BUPROPION HYDROCHLORIDE
  14. TRAMADOL HYDROCHLORIDE. [Concomitant]
     Active Substance: TRAMADOL HYDROCHLORIDE
  15. ALBUTEROL SULFATE. [Concomitant]
     Active Substance: ALBUTEROL SULFATE
  16. VITAMINS NOS [Concomitant]
     Active Substance: VITAMINS
  17. PROGESTERONE. [Concomitant]
     Active Substance: PROGESTERONE
  18. AZTREONAM LYSINE [Suspect]
     Active Substance: AZTREONAM LYSINE
     Indication: CYSTIC FIBROSIS
     Dosage: 75 MG, TID  28 DAYS ON AND 28 DAYS OFF CYCLES
     Route: 055
  19. AVAPRO [Concomitant]
     Active Substance: IRBESARTAN
  20. CALCIUM [Concomitant]
     Active Substance: CALCIUM
  21. SINGULAIR [Concomitant]
     Active Substance: MONTELUKAST SODIUM
  22. PULMOZYME [Concomitant]
     Active Substance: DORNASE ALFA
  23. HYDROCODONE BITARTRATE AND ACETAMINOPHEN [Concomitant]
     Active Substance: ACETAMINOPHEN\HYDROCODONE BITARTRATE
  24. ZANTAC [Concomitant]
     Active Substance: RANITIDINE HYDROCHLORIDE
  25. NORVASC [Concomitant]
     Active Substance: AMLODIPINE BESYLATE
  26. FLONASE [MOMETASONE FUROATE] [Concomitant]
     Active Substance: MOMETASONE FUROATE
  27. ZANAFLEX [Concomitant]
     Active Substance: TIZANIDINE HYDROCHLORIDE
  28. SYMDEKO [Concomitant]
     Active Substance: IVACAFTOR\TEZACAFTOR
  29. NEURONTIN [Concomitant]
     Active Substance: GABAPENTIN
  30. AZITHROMYCIN ANHYDROUS. [Concomitant]
     Active Substance: AZITHROMYCIN ANHYDROUS
  31. ZENPEP [Concomitant]
     Active Substance: PANCRELIPASE AMYLASE\PANCRELIPASE LIPASE\PANCRELIPASE PROTEASE
  32. SODIUM CHLORIDE. [Concomitant]
     Active Substance: SODIUM CHLORIDE
  33. PROAIR HFA [Concomitant]
     Active Substance: ALBUTEROL SULFATE
  34. PROBIOTIC 10 [Concomitant]
     Active Substance: DIETARY SUPPLEMENT\PROBIOTICS

REACTIONS (1)
  - Surgery [Unknown]
